FAERS Safety Report 9559428 (Version 1)
Quarter: 2013Q3

REPORT INFORMATION
  Report Type: Spontaneous
  Country: US (occurrence: None)
  Receive Date: 20130906
  Receipt Date: 20130906
  Transmission Date: 20140515
  Serious: No
  Sender: FDA-Public Use
  Company Number: 163-POMAL-13074240

PATIENT
  Age: 82 Year
  Sex: Female

DRUGS (3)
  1. POMALYST [Suspect]
     Indication: PLASMA CELL MYELOMA
     Dosage: 4 MG, 21 IN 28 D, PO
     Route: 048
     Dates: start: 20130402
  2. CARFILZOMIB (CARFILZOMIB) (UNKNOWN) [Concomitant]
  3. DEXAMETHASONE (DEXAMEHTASONE) (UNKNOWN) [Concomitant]

REACTIONS (6)
  - Respiratory disorder [None]
  - Fatigue [None]
  - Confusional state [None]
  - Dizziness [None]
  - Tremor [None]
  - Pyrexia [None]
